FAERS Safety Report 8789961 (Version 1)
Quarter: 2012Q4

REPORT INFORMATION
  Report Type: Report from Study
  Country: CA (occurrence: CA)
  Receive Date: 20120917
  Receipt Date: 20120917
  Transmission Date: 20130627
  Serious: Yes (Hospitalization)
  Sender: FDA-Public Use
  Company Number: CA-JNJFOC-20120902395

PATIENT
  Sex: Male
  Weight: 68.1 kg

DRUGS (1)
  1. REMICADE [Suspect]
     Indication: CROHN^S DISEASE
     Route: 042
     Dates: start: 20110516

REACTIONS (2)
  - Oesophageal rupture [Recovered/Resolved]
  - Retching [Recovered/Resolved]
